FAERS Safety Report 11640256 (Version 1)
Quarter: 2015Q4

REPORT INFORMATION
  Report Type: Report from Study
  Country: CA (occurrence: CA)
  Receive Date: 20151019
  Receipt Date: 20151019
  Transmission Date: 20160304
  Serious: Yes (Other)
  Sender: FDA-Public Use
  Company Number: CA-ABBVIE-15K-028-1470204-00

PATIENT
  Age: 62 Year
  Sex: Male

DRUGS (2)
  1. COVERSYL [Concomitant]
     Active Substance: PERINDOPRIL
     Indication: BLOOD PRESSURE INCREASED
     Route: 048
  2. HUMIRA [Suspect]
     Active Substance: ADALIMUMAB
     Indication: CROHN^S DISEASE
     Route: 058
     Dates: start: 20150703, end: 20150911

REACTIONS (9)
  - Arthralgia [Unknown]
  - Weight decreased [Unknown]
  - Diarrhoea [Not Recovered/Not Resolved]
  - Lupus-like syndrome [Recovering/Resolving]
  - Pain [Not Recovered/Not Resolved]
  - Photosensitivity reaction [Unknown]
  - Myalgia [Unknown]
  - Drug ineffective [Not Recovered/Not Resolved]
  - Defaecation urgency [Unknown]

NARRATIVE: CASE EVENT DATE: 2015
